FAERS Safety Report 5282528-8 (Version None)
Quarter: 2007Q1

REPORT INFORMATION
  Report Type: 
  Country: None (occurrence: None)
  Receive Date: 20070326
  Receipt Date: 20070320
  Transmission Date: 20070707
  Serious: No
  Sender: FDA-Public Use
  Company Number: TAP2007Q00220

PATIENT
  Age: 64 Year
  Sex: Male
  Weight: 83.6 kg

DRUGS (6)
  1. PREVACID [Suspect]
     Indication: GASTRIC ULCER HAEMORRHAGE
     Dosage: SEE IMAGE
     Route: 048
     Dates: start: 20061229, end: 20070215
  2. PREVACID [Suspect]
     Indication: HIATUS HERNIA
     Dosage: SEE IMAGE
     Route: 048
     Dates: start: 20061229, end: 20070215
  3. PREVACID [Suspect]
     Indication: GASTRIC ULCER HAEMORRHAGE
     Dosage: SEE IMAGE
     Route: 048
     Dates: start: 20070216, end: 20070320
  4. PREVACID [Suspect]
     Indication: HIATUS HERNIA
     Dosage: SEE IMAGE
     Route: 048
     Dates: start: 20070216, end: 20070320
  5. IRON SUPPLEMENT (IRON) [Concomitant]
  6. NIACIN [Concomitant]

REACTIONS (5)
  - ASTHENIA [None]
  - CONDITION AGGRAVATED [None]
  - DIARRHOEA [None]
  - FATIGUE [None]
  - INTRAOCULAR PRESSURE INCREASED [None]
